FAERS Safety Report 13792368 (Version 1)
Quarter: 2017Q3

REPORT INFORMATION
  Report Type: Report from Study
  Country: None (occurrence: US)
  Receive Date: 20170726
  Receipt Date: 20170726
  Transmission Date: 20171127
  Serious: Yes (Hospitalization)
  Sender: FDA-Public Use
  Company Number: US-ARALEZ PHARMACEUTICALS R+D INC.-ARA-TP-US-2017-794

PATIENT
  Age: 78 Year
  Sex: Female
  Weight: 63.56 kg

DRUGS (6)
  1. LISINOPRIL. [Suspect]
     Active Substance: LISINOPRIL
     Indication: BLOOD PRESSURE MEASUREMENT
     Route: 048
     Dates: start: 201609
  2. METOPROLOL SUCCINATE. [Suspect]
     Active Substance: METOPROLOL SUCCINATE
     Indication: CARDIAC DISORDER
     Route: 048
     Dates: start: 2012
  3. SYMBICORT [Suspect]
     Active Substance: BUDESONIDE\FORMOTEROL FUMARATE DIHYDRATE
     Indication: CHRONIC OBSTRUCTIVE PULMONARY DISEASE
     Route: 055
     Dates: start: 201205
  4. IMURAN [Concomitant]
     Active Substance: AZATHIOPRINE
     Indication: ANTIPHOSPHOLIPID ANTIBODIES
     Route: 048
  5. TIKOSYN [Concomitant]
     Active Substance: DOFETILIDE
     Indication: ATRIAL FIBRILLATION
     Route: 048
     Dates: start: 201609
  6. ELIQUIS [Concomitant]
     Active Substance: APIXABAN
     Indication: ANTICOAGULANT THERAPY
     Route: 048
     Dates: start: 201609

REACTIONS (7)
  - Rhinorrhoea [Unknown]
  - Cough [Unknown]
  - Secretion discharge [Unknown]
  - Hypersensitivity [Unknown]
  - Sneezing [Unknown]
  - Implantable defibrillator insertion [Unknown]
  - Laryngitis [Unknown]

NARRATIVE: CASE EVENT DATE: 201502
